FAERS Safety Report 19836689 (Version 8)
Quarter: 2023Q4

REPORT INFORMATION
  Report Type: Spontaneous
  Country: CA (occurrence: CA)
  Receive Date: 20210916
  Receipt Date: 20231121
  Transmission Date: 20240109
  Serious: Yes (Other)
  Sender: FDA-Public Use
  Company Number: CA-CELLTRION INC.-2021CA012501

PATIENT

DRUGS (12)
  1. INFLECTRA [Suspect]
     Active Substance: INFLIXIMAB-DYYB
     Indication: Rheumatoid arthritis
     Dosage: 3 MG/KG, 0, 2, 6, MAINTENANCE EVERY 8 WEEKS
     Route: 042
     Dates: start: 20210621, end: 20210901
  2. INFLECTRA [Suspect]
     Active Substance: INFLIXIMAB-DYYB
     Dosage: 3 MG/KG, 0, 2, 6, MAINTENANCE EVERY 8 WEEKS
     Route: 042
     Dates: start: 20210804
  3. INFLECTRA [Suspect]
     Active Substance: INFLIXIMAB-DYYB
     Dosage: 3 MG/KG, 0, 2, 6, MAINTENANCE EVERY 8 WEEKS
     Route: 042
     Dates: start: 20210901
  4. INFLECTRA [Suspect]
     Active Substance: INFLIXIMAB-DYYB
     Dosage: 3 MG/KG, EVERY 8 WEEKS
     Route: 042
     Dates: start: 20211024, end: 20220214
  5. INFLECTRA [Suspect]
     Active Substance: INFLIXIMAB-DYYB
     Dosage: 200 MG, 0, 2, 6, MAINTENANCE EVERY 8 WEEKS
     Route: 042
     Dates: start: 20211025
  6. INFLECTRA [Suspect]
     Active Substance: INFLIXIMAB-DYYB
     Dosage: 200 MG, 0, 2, 6, MAINTENANCE EVERY 8 WEEKS(PATIENT IS SUPPOSED TO RECEIVE 3 MG/KG)
     Route: 042
     Dates: start: 20211220
  7. INFLECTRA [Suspect]
     Active Substance: INFLIXIMAB-DYYB
     Dosage: 3 MG/KG, EVERY 8 WEEKS
     Route: 042
     Dates: start: 20211221
  8. INFLECTRA [Suspect]
     Active Substance: INFLIXIMAB-DYYB
     Dosage: 3 MG/KG, EVERY 8 WEEKS
     Route: 042
     Dates: start: 20220214
  9. INFLECTRA [Suspect]
     Active Substance: INFLIXIMAB-DYYB
     Dosage: 200 MG EVERY 6 WEEKS
     Route: 042
     Dates: start: 20220411
  10. HYDROXYCHLOROQUINE [Concomitant]
     Active Substance: HYDROXYCHLOROQUINE
     Dosage: 1 DF
  11. LEFLUNOMIDE [Concomitant]
     Active Substance: LEFLUNOMIDE
     Dosage: 1 DF
  12. METHOTREXATE [Concomitant]
     Active Substance: METHOTREXATE
     Dosage: 1 DF

REACTIONS (9)
  - Blood pressure systolic increased [Not Recovered/Not Resolved]
  - Cataract [Unknown]
  - Musculoskeletal discomfort [Unknown]
  - Blood pressure fluctuation [Not Recovered/Not Resolved]
  - Body temperature decreased [Unknown]
  - COVID-19 [Recovered/Resolved]
  - Nasopharyngitis [Not Recovered/Not Resolved]
  - Inappropriate schedule of product administration [Unknown]
  - Off label use [Unknown]

NARRATIVE: CASE EVENT DATE: 20210804
